FAERS Safety Report 25422897 (Version 3)
Quarter: 2025Q4

REPORT INFORMATION
  Report Type: Report from Study
  Country: JP (occurrence: JP)
  Receive Date: 20250611
  Receipt Date: 20251008
  Transmission Date: 20260117
  Serious: Yes (Death)
  Sender: GILEAD
  Company Number: JP-GILEAD-2022-0586665

PATIENT
  Age: 6 Decade
  Sex: Male

DRUGS (8)
  1. EMTRICITABINE\TENOFOVIR [Suspect]
     Active Substance: EMTRICITABINE\TENOFOVIR
     Indication: HIV infection
     Dosage: 1 DOSAGE FORM, QD
     Route: 048
     Dates: start: 20170228, end: 20181119
  2. EMTRICITABINE\TENOFOVIR [Suspect]
     Active Substance: EMTRICITABINE\TENOFOVIR
     Dosage: 1 DOSAGE FORM, QD
     Route: 048
     Dates: start: 20181127
  3. PIFELTRO [Suspect]
     Active Substance: DORAVIRINE
     Indication: HIV infection
     Dosage: 1 DOSAGE FORM
     Route: 065
     Dates: start: 20200421, end: 20200519
  4. PIFELTRO [Suspect]
     Active Substance: DORAVIRINE
     Dosage: 1 DOSAGE FORM
     Route: 065
     Dates: start: 20230901
  5. ISENTRESS [Suspect]
     Active Substance: RALTEGRAVIR POTASSIUM
     Indication: HIV infection
     Dosage: 800 MG
     Route: 065
     Dates: start: 20171207, end: 20171213
  6. INTELENCE [Concomitant]
     Active Substance: ETRAVIRINE
     Indication: HIV infection
     Dosage: 4 DOSAGE FORM
     Dates: start: 20170228, end: 20171206
  7. INTELENCE [Concomitant]
     Active Substance: ETRAVIRINE
     Dosage: 4 DOSAGE FORM
     Dates: start: 20171214, end: 20181119
  8. INTELENCE [Concomitant]
     Active Substance: ETRAVIRINE
     Dosage: 4 DOSAGE FORM
     Dates: start: 20181127, end: 20200420

REACTIONS (5)
  - Death [Fatal]
  - Malaise [Recovered/Resolved]
  - Weight increased [Recovering/Resolving]
  - Headache [Recovering/Resolving]
  - Headache [Recovered/Resolved]

NARRATIVE: CASE EVENT DATE: 20171213
